FAERS Safety Report 5726617-X (Version None)
Quarter: 2008Q2

REPORT INFORMATION
  Report Type: 
  Country: None (occurrence: None)
  Receive Date: 20080501
  Receipt Date: 20080422
  Transmission Date: 20081010
  Serious: Yes (Other)
  Sender: FDA-Public Use
  Company Number: APP200800330

PATIENT
  Age: 59 Year
  Sex: Male

DRUGS (9)
  1. HEPARIN SODIUM INJECTION [Suspect]
     Indication: TRANSIENT ISCHAEMIC ATTACK
     Dosage: ONCE, INTRAVENOUS DRIP
     Route: 041
     Dates: start: 20070503, end: 20070503
  2. CRESTOR [Concomitant]
  3. OMEPRAZOLE [Concomitant]
  4. METFORMIN HCL [Concomitant]
  5. LANTUS [Concomitant]
  6. PLAVIX [Concomitant]
  7. EXCELON (RIVASTIGMINE) [Concomitant]
  8. FUROSEMIDE [Concomitant]
  9. SPIRONOLACTONE [Concomitant]

REACTIONS (1)
  - PLATELET COUNT DECREASED [None]
